FAERS Safety Report 13693002 (Version 1)
Quarter: 2017Q2

REPORT INFORMATION
  Report Type: Spontaneous
  Country: US (occurrence: US)
  Receive Date: 20170626
  Receipt Date: 20170626
  Transmission Date: 20170830
  Serious: Yes (Hospitalization)
  Sender: FDA-Public Use
  Company Number: None

PATIENT
  Age: 72 Year
  Sex: Male
  Weight: 82 kg

DRUGS (1)
  1. GEMCITABINE [Suspect]
     Active Substance: GEMCITABINE\GEMCITABINE HYDROCHLORIDE
     Indication: BRONCHOSPASM
     Route: 042
     Dates: start: 20130911, end: 20170613

REACTIONS (5)
  - Bronchospasm [None]
  - Wheezing [None]
  - Abdominal distension [None]
  - Tachypnoea [None]
  - Acute respiratory distress syndrome [None]

NARRATIVE: CASE EVENT DATE: 20170613
